FAERS Safety Report 14373933 (Version 2)
Quarter: 2018Q2

REPORT INFORMATION
  Report Type: Spontaneous
  Country: US (occurrence: US)
  Receive Date: 20180111
  Receipt Date: 20180622
  Transmission Date: 20180711
  Serious: No
  Sender: FDA-Public Use
  Company Number: US-ASTRAZENECA-2017SF29812

PATIENT
  Age: 56 Year
  Sex: Female
  Weight: 81.6 kg

DRUGS (1)
  1. BEVESPI AEROSPHERE [Suspect]
     Active Substance: FORMOTEROL FUMARATE\GLYCOPYRROLATE
     Indication: CHRONIC OBSTRUCTIVE PULMONARY DISEASE
     Dosage: 9/4.8 MCG TWO INHALATIONS TWICE A DAY
     Route: 055
     Dates: start: 2017

REACTIONS (10)
  - Device malfunction [Unknown]
  - Body height decreased [Not Recovered/Not Resolved]
  - Weight increased [Not Recovered/Not Resolved]
  - Pain [Not Recovered/Not Resolved]
  - Depression [Not Recovered/Not Resolved]
  - Pulmonary function test decreased [Not Recovered/Not Resolved]
  - Drug dose omission [Unknown]
  - Device failure [Unknown]
  - Product taste abnormal [Not Recovered/Not Resolved]
  - Wrong technique in device usage process [Not Recovered/Not Resolved]

NARRATIVE: CASE EVENT DATE: 2017
